FAERS Safety Report 18787609 (Version 1)
Quarter: 2021Q1

REPORT INFORMATION
  Report Type: Spontaneous
  Country: US (occurrence: US)
  Receive Date: 20210126
  Receipt Date: 20210126
  Transmission Date: 20210419
  Serious: Yes (Other)
  Sender: FDA-Public Use
  Company Number: US-GLAXOSMITHKLINE-US2021GSK004873

PATIENT
  Age: 68 Year
  Sex: Female

DRUGS (17)
  1. ZANTAC [Suspect]
     Active Substance: RANITIDINE HYDROCHLORIDE
     Indication: GASTROOESOPHAGEAL REFLUX DISEASE
     Dosage: UNK UNK, QD
     Route: 065
     Dates: start: 198607, end: 201706
  2. RANITIDINE. [Suspect]
     Active Substance: RANITIDINE
     Indication: GASTROOESOPHAGEAL REFLUX DISEASE
     Dosage: 25 MG, QD
     Route: 065
     Dates: start: 198607, end: 201706
  3. ZANTAC [Suspect]
     Active Substance: RANITIDINE HYDROCHLORIDE
     Dosage: 75 MG, QD
     Route: 065
     Dates: start: 198607, end: 201706
  4. RANITIDINE. [Suspect]
     Active Substance: RANITIDINE
     Indication: GASTROOESOPHAGEAL REFLUX DISEASE
     Dosage: 25 MG PRESCRIPTION
     Route: 065
     Dates: start: 198607, end: 201706
  5. ZANTAC [Suspect]
     Active Substance: RANITIDINE HYDROCHLORIDE
     Dosage: 75 MG PRESCRIPTION
     Route: 065
     Dates: start: 198607, end: 201706
  6. RANITIDINE. [Suspect]
     Active Substance: RANITIDINE
     Dosage: 75 MG PRESCRIPTION
     Route: 065
     Dates: start: 198607, end: 201706
  7. RANITIDINE. [Suspect]
     Active Substance: RANITIDINE
     Dosage: 150 MG PRESCRIPTION
     Route: 065
     Dates: start: 198607, end: 201706
  8. RANITIDINE. [Suspect]
     Active Substance: RANITIDINE
     Dosage: 300 MG, QD
     Route: 065
     Dates: start: 198607, end: 201706
  9. ZANTAC [Suspect]
     Active Substance: RANITIDINE HYDROCHLORIDE
     Dosage: 150 MG, QD
     Route: 065
     Dates: start: 198607, end: 201706
  10. ZANTAC [Suspect]
     Active Substance: RANITIDINE HYDROCHLORIDE
     Indication: GASTROOESOPHAGEAL REFLUX DISEASE
     Dosage: 25 MG PRESCRIPTION
     Route: 065
     Dates: start: 198607, end: 201706
  11. RANITIDINE. [Suspect]
     Active Substance: RANITIDINE
     Dosage: 75 MG, QD
     Route: 065
     Dates: start: 198607, end: 201706
  12. RANITIDINE. [Suspect]
     Active Substance: RANITIDINE
     Dosage: 300 MG, QD
     Route: 065
     Dates: start: 198607, end: 201706
  13. ZANTAC [Suspect]
     Active Substance: RANITIDINE HYDROCHLORIDE
     Dosage: 150 MG PRESCRIPTION
     Route: 065
     Dates: start: 198607, end: 201706
  14. ZANTAC [Suspect]
     Active Substance: RANITIDINE HYDROCHLORIDE
     Dosage: 300 MG, QD
     Route: 065
     Dates: start: 198607, end: 201706
  15. ZANTAC [Suspect]
     Active Substance: RANITIDINE HYDROCHLORIDE
     Indication: GASTROOESOPHAGEAL REFLUX DISEASE
     Dosage: 25 MG, QD
     Route: 065
     Dates: start: 198607, end: 201706
  16. RANITIDINE. [Suspect]
     Active Substance: RANITIDINE
     Dosage: 150 MG, QD
     Route: 065
     Dates: start: 198607, end: 201706
  17. ZANTAC [Suspect]
     Active Substance: RANITIDINE HYDROCHLORIDE
     Dosage: 300 MG, QD
     Route: 065
     Dates: start: 198607, end: 201706

REACTIONS (1)
  - Breast cancer [Unknown]

NARRATIVE: CASE EVENT DATE: 20180801
